FAERS Safety Report 18330431 (Version 2)
Quarter: 2020Q4

REPORT INFORMATION
  Report Type: Spontaneous
  Country: DE (occurrence: DE)
  Receive Date: 20200930
  Receipt Date: 20201124
  Transmission Date: 20210113
  Serious: Yes (Hospitalization)
  Sender: FDA-Public Use
  Company Number: DE-MYLANLABS-2020M1081878

PATIENT
  Age: 78 Year
  Sex: Male

DRUGS (21)
  1. INSULIN HUMAN [Concomitant]
     Active Substance: INSULIN HUMAN
     Dosage: UNK
     Route: 058
  2. ALLOPURINOL. [Concomitant]
     Active Substance: ALLOPURINOL
     Dosage: 300 MILLIGRAM (300 MG, 0.5-0-0-0, TABLETTEN)
     Route: 048
  3. TORASEMID [Concomitant]
     Active Substance: TORSEMIDE
     Dosage: 10 MILLIGRAM, QD (10 MG, 1-0-0-0, TABLETTEN)
     Route: 048
  4. KALINOR                            /00279301/ [Concomitant]
     Active Substance: CITRIC ACID MONOHYDRATE\POTASSIUM BICARBONATE\POTASSIUM CITRATE
     Dosage: 2500|1565.5 MG, 1-0-0-0, BRAUSETABLETTEN  QD
     Route: 048
  5. TRAMADOL. [Concomitant]
     Active Substance: TRAMADOL
     Dosage: 50 MG, RETARD-KAPSELN
     Route: 048
  6. QUETIAPINE. [Concomitant]
     Active Substance: QUETIAPINE
     Dosage: 25 MILLIGRAM (25 MG, 0-0-0-2, TABLETTEN)
     Route: 048
  7. EISEN-II-SULFAT [Concomitant]
     Active Substance: FERROUS SULFATE
     Dosage: 100 MILLIGRAM, QD (100 MG, 1-0-0-0, KAPSELN)
     Route: 048
  8. INSULIN GLARGINE [Concomitant]
     Active Substance: INSULIN GLARGINE
     Dosage: 16 IE, 0-0-0-16, AMPULLEN
     Route: 058
  9. ROPINIROLE. [Suspect]
     Active Substance: ROPINIROLE
     Indication: PRODUCT USED FOR UNKNOWN INDICATION
     Dosage: 8 MILLIGRAM, QD (8 MG, 1-0-0-0, RETARD-TABLETTEN)
     Route: 048
  10. APIXABAN [Concomitant]
     Active Substance: APIXABAN
     Dosage: 2.5 MILLIGRAM, BID (2.5 MG, 1-0-1-0, TABLETTEN)
     Route: 048
  11. VITAMIN B12 [Concomitant]
     Active Substance: CYANOCOBALAMIN
     Dosage: UNK UNK, QD (NK MG, 1-0-0-0, KAPSELN)
     Route: 048
  12. VITAMIN D                          /00318501/ [Concomitant]
     Active Substance: CHOLECALCIFEROL
     Dosage: 20.000 IE / WOCHE, 1X, KAPSELN
     Route: 048
  13. KALIUM                             /00031401/ [Concomitant]
     Active Substance: POTASSIUM CHLORIDE
     Dosage: 1-0-0-0,
     Route: 048
  14. BENSERAZIDE W/LEVODOPA [Concomitant]
     Active Substance: BENSERAZIDE\LEVODOPA
     Dosage: UNK, TID (25|100 MG, 1-1-1-0, KAPSELN)
     Route: 048
  15. CARVEDILOL. [Concomitant]
     Active Substance: CARVEDILOL
     Dosage: 12.5 MILLIGRAM, QD (12.5 MG, 1-0-0-0, TABLETTEN)
     Route: 048
  16. XIPAMID [Concomitant]
     Active Substance: XIPAMIDE
     Dosage: 20 MILLIGRAM, QD (20 MG, 1-0-0-0, TABLETTEN)
     Route: 048
  17. METAMIZOL                          /06276701/ [Concomitant]
     Active Substance: METAMIZOLE
     Dosage: 20 GTT DROPS, 4X (20 GTT, 4X, TROPFEN)
     Route: 048
  18. AMANTADIN                          /00055901/ [Suspect]
     Active Substance: AMANTADINE
     Indication: PRODUCT USED FOR UNKNOWN INDICATION
     Dosage: 100 MILLIGRAM, QD (100 MG, 1-0-0-0, TABLETTEN)
     Route: 048
  19. MADOPAR LT [Concomitant]
     Active Substance: BENSERAZIDE HYDROCHLORIDE\LEVODOPA
     Dosage: UNK, QD (25|100 MG, 1-0-0-0, TABLETTEN)
     Route: 048
  20. FOLIC ACID. [Concomitant]
     Active Substance: FOLIC ACID
     Dosage: 5 MILLIGRAM, 2X (5 MG / WOCHE, 2X, TABLETTEN)
     Route: 048
  21. AMOXICILLIN CLAVULANIC ACID [Concomitant]
     Active Substance: AMOXICILLIN\CLAVULANIC ACID
     Dosage: UNK, BID (875|125 MG, 1-0-1-0, TABLETTEN)
     Route: 048

REACTIONS (6)
  - General physical health deterioration [Unknown]
  - Product prescribing error [Unknown]
  - Somnolence [Unknown]
  - Depressed level of consciousness [Unknown]
  - Fall [Unknown]
  - Loss of consciousness [Unknown]
